FAERS Safety Report 9118344 (Version 1)
Quarter: 2013Q1

REPORT INFORMATION
  Report Type: Spontaneous
  Country: US (occurrence: None)
  Receive Date: 20130221
  Receipt Date: 20130221
  Transmission Date: 20140127
  Serious: Yes (Other)
  Sender: FDA-Public Use
  Company Number: None

PATIENT
  Age: 57 Year
  Sex: Female
  Weight: 70 kg

DRUGS (7)
  1. PATADAY EYE DROPS [Suspect]
     Indication: EYE ALLERGY
     Dosage: 1 DROP IN 1 EYE DAILY 046
     Dates: start: 20121026, end: 20121119
  2. LASTACAFT EYE DROPS [Suspect]
     Indication: EYE ALLERGY
     Dosage: 1 DROP IN 1 EYE DAILY 046
     Dates: start: 20121026, end: 20121119
  3. FOSTEUM [Concomitant]
  4. CALCIUM W/MAGNESIUM + VIT. D [Concomitant]
  5. MULTI-VITAMIN/MINS [Concomitant]
  6. OMEGA 3-6-9 [Concomitant]
  7. PROBIOTIC [Concomitant]

REACTIONS (3)
  - Eyelid oedema [None]
  - Hypersensitivity [None]
  - Swelling face [None]
